FAERS Safety Report 25729997 (Version 1)
Quarter: 2025Q3

REPORT INFORMATION
  Report Type: Other
  Country: TR (occurrence: TR)
  Receive Date: 20250827
  Receipt Date: 20250827
  Transmission Date: 20251021
  Serious: Yes (Hospitalization, Other)
  Sender: ESJAY PHARMA
  Company Number: TR-ESJAY PHARMA-000950

PATIENT
  Age: 22 Year
  Sex: Male

DRUGS (1)
  1. LANSOPRAZOLE [Suspect]
     Active Substance: LANSOPRAZOLE
     Indication: Product used for unknown indication
     Route: 042

REACTIONS (4)
  - Septic shock [Recovering/Resolving]
  - Incorrect route of product administration [Unknown]
  - Metabolic acidosis [Recovering/Resolving]
  - Intentional self-injury [Unknown]
